FAERS Safety Report 8179255-6 (Version None)
Quarter: 2012Q1

REPORT INFORMATION
  Report Type: 
  Country: None (occurrence: None)
  Receive Date: 20120302
  Receipt Date: 20120220
  Transmission Date: 20120608
  Serious: Yes (Other)
  Sender: FDA-Public Use
  Company Number: US-JNJFOC-20120210174

PATIENT
  Age: 59 Year
  Sex: Male
  Weight: 99.79 kg

DRUGS (5)
  1. STELARA [Suspect]
     Indication: PSORIASIS
     Route: 058
     Dates: start: 20110501
  2. ASPIRIN [Concomitant]
  3. LISINOPRIL [Concomitant]
  4. METFORMIN HCL [Concomitant]
  5. STATICIN [Concomitant]

REACTIONS (1)
  - BRAIN NEOPLASM [None]
